FAERS Safety Report 7297291-9 (Version None)
Quarter: 2011Q1

REPORT INFORMATION
  Report Type: 
  Country: None (occurrence: None)
  Receive Date: 20110216
  Receipt Date: 20110210
  Transmission Date: 20110831
  Serious: Yes (Other)
  Sender: FDA-Public Use
  Company Number: CHPA2011US02463

PATIENT
  Age: 89 Year
  Sex: Male
  Weight: 74.83 kg

DRUGS (4)
  1. NASAL PREPARATIONS [Concomitant]
     Indication: HYPERSENSITIVITY
  2. VOLTAREN [Suspect]
     Dosage: 2 G, ONCE OR TWICE A DAY
     Route: 061
  3. STEROIDS NOS [Concomitant]
  4. DRUG THERAPY NOS [Concomitant]
     Indication: BLOOD GLUCOSE INCREASED

REACTIONS (7)
  - OFF LABEL USE [None]
  - DRUG ADMINISTERED AT INAPPROPRIATE SITE [None]
  - GLAUCOMA [None]
  - DIZZINESS [None]
  - BLOOD GLUCOSE INCREASED [None]
  - THERAPEUTIC RESPONSE UNEXPECTED [None]
  - VERTIGO [None]
